FAERS Safety Report 12421602 (Version 1)
Quarter: 2016Q2

REPORT INFORMATION
  Report Type: Spontaneous
  Country: CH (occurrence: CH)
  Receive Date: 20160531
  Receipt Date: 20160531
  Transmission Date: 20160815
  Serious: Yes (Hospitalization)
  Sender: FDA-Public Use
  Company Number: CH-MYLANLABS-2016M1022112

PATIENT

DRUGS (11)
  1. DIGOXIN. [Suspect]
     Active Substance: DIGOXIN
     Route: 064
  2. HEPARIN [Suspect]
     Active Substance: HEPARIN SODIUM
     Route: 064
  3. NOREPINEPHRINE [Suspect]
     Active Substance: NOREPINEPHRINE\NOREPINEPHRINE BITARTRATE
     Route: 064
  4. BETAMETHASONE. [Suspect]
     Active Substance: BETAMETHASONE
     Route: 064
  5. MAGNESIUM [Suspect]
     Active Substance: MAGNESIUM
     Route: 064
  6. ASPIRIN                            /00002701/ [Suspect]
     Active Substance: ASPIRIN
     Route: 064
  7. FONDAPARINUX [Suspect]
     Active Substance: FONDAPARINUX
     Route: 064
  8. AMOXICILLIN. [Suspect]
     Active Substance: AMOXICILLIN
     Route: 064
  9. POTASSIUM [Suspect]
     Active Substance: POTASSIUM
     Route: 064
  10. DALTEPARIN [Suspect]
     Active Substance: DALTEPARIN
     Route: 064
  11. FUROSEMIDE. [Suspect]
     Active Substance: FUROSEMIDE
     Dosage: UNK
     Route: 064

REACTIONS (3)
  - Low birth weight baby [Not Recovered/Not Resolved]
  - Premature baby [Not Recovered/Not Resolved]
  - Foetal exposure during pregnancy [Recovered/Resolved]
